FAERS Safety Report 8433463-5 (Version None)
Quarter: 2012Q2

REPORT INFORMATION
  Report Type: 
  Country: None (occurrence: None)
  Receive Date: 20120613
  Receipt Date: 20120606
  Transmission Date: 20120825
  Serious: Yes (Other)
  Sender: FDA-Public Use
  Company Number: GB-JNJFOC-20120506385

PATIENT
  Sex: Male

DRUGS (2)
  1. MINOXIDIL [Suspect]
     Indication: PRODUCT USED FOR UNKNOWN INDICATION
     Route: 065
  2. MINOXIDIL [Suspect]
     Route: 065

REACTIONS (1)
  - CARDIAC DISORDER [None]
